FAERS Safety Report 9382537 (Version 1)
Quarter: 2013Q3

REPORT INFORMATION
  Report Type: Spontaneous
  Country: US (occurrence: US)
  Receive Date: 20130703
  Receipt Date: 20130703
  Transmission Date: 20140515
  Serious: Yes (Death)
  Sender: FDA-Public Use
  Company Number: US-GLAXOSMITHKLINE-A1029302A

PATIENT
  Age: 65 Year
  Sex: Male

DRUGS (8)
  1. VOTRIENT [Suspect]
     Indication: MALIGNANT URINARY TRACT NEOPLASM
     Dosage: 800MG PER DAY
     Route: 048
     Dates: start: 20130427, end: 20130613
  2. BETA CAROTENE [Concomitant]
  3. SELENIUM [Concomitant]
  4. ASPIRIN [Concomitant]
  5. GARLIC [Concomitant]
  6. GRAPE SEED [Concomitant]
  7. VITAMIN C [Concomitant]
  8. PREVACID [Concomitant]

REACTIONS (1)
  - Death [Fatal]
